FAERS Safety Report 6581719-3 (Version None)
Quarter: 2010Q1

REPORT INFORMATION
  Report Type: 
  Country: None (occurrence: None)
  Receive Date: 20100215
  Receipt Date: 20100201
  Transmission Date: 20100710
  Serious: Yes (Hospitalization)
  Sender: FDA-Public Use
  Company Number: PHHY2010SE05546

PATIENT
  Sex: Female

DRUGS (5)
  1. DIOVAN COMP [Suspect]
     Dosage: UNK
     Route: 048
     Dates: start: 20091028, end: 20091208
  2. WARAN [Concomitant]
     Dosage: 2.5 MG
  3. SELOKEN ZOC [Concomitant]
     Dosage: 100 MG
  4. XALATAN [Concomitant]
     Dosage: 50 UG/ML
  5. AZOPT [Concomitant]
     Dosage: 10 MG/ML

REACTIONS (11)
  - ANAEMIA HAEMOLYTIC AUTOIMMUNE [None]
  - ASPARTATE AMINOTRANSFERASE INCREASED [None]
  - BLOOD BILIRUBIN INCREASED [None]
  - COOMBS DIRECT TEST POSITIVE [None]
  - DIZZINESS [None]
  - FATIGUE [None]
  - GAMMA-GLUTAMYLTRANSFERASE INCREASED [None]
  - JAUNDICE [None]
  - MEAN CELL HAEMOGLOBIN CONCENTRATION INCREASED [None]
  - RETICULOCYTE COUNT INCREASED [None]
  - WHITE BLOOD CELL COUNT INCREASED [None]
